FAERS Safety Report 17412414 (Version 1)
Quarter: 2020Q1

REPORT INFORMATION
  Report Type: Spontaneous
  Country: US (occurrence: US)
  Receive Date: 20200213
  Receipt Date: 20200213
  Transmission Date: 20200409
  Serious: Yes (Hospitalization, Other)
  Sender: FDA-Public Use
  Company Number: US-AUROBINDO-AUR-APL-2019-106472

PATIENT
  Age: 6 Year
  Sex: Male

DRUGS (9)
  1. LORAZEPAM. [Suspect]
     Active Substance: LORAZEPAM
     Indication: INSOMNIA
     Dosage: 1.5 MILLIGRAM, AS NECESSARY AT NIGHT
     Route: 048
  2. DIPHENHYDRAMINE. [Suspect]
     Active Substance: DIPHENHYDRAMINE
     Indication: AGITATION
  3. LORAZEPAM. [Suspect]
     Active Substance: LORAZEPAM
     Indication: AGITATION
     Dosage: UNK, REDUCTION IN DOSE
     Route: 048
  4. OLANZAPINE. [Suspect]
     Active Substance: OLANZAPINE
     Indication: INSOMNIA
     Dosage: 5 MILLIGRAM, TWO TIMES A DAY
     Route: 048
  5. DIPHENHYDRAMINE. [Suspect]
     Active Substance: DIPHENHYDRAMINE
     Indication: INSOMNIA
     Dosage: UNK, AS NEEDED
     Route: 048
  6. CLONIDINE. [Suspect]
     Active Substance: CLONIDINE
     Indication: AGITATION
     Dosage: UNK, OPTIMIZATION DOSE
     Route: 048
  7. CLONIDINE. [Suspect]
     Active Substance: CLONIDINE
     Indication: INSOMNIA
     Dosage: 0.2 MILLIGRAM AT NIGHT
     Route: 048
  8. OLANZAPINE. [Suspect]
     Active Substance: OLANZAPINE
     Indication: AGITATION
     Dosage: UNK, INCREASED DOSE
     Route: 048
  9. OLANZAPINE. [Suspect]
     Active Substance: OLANZAPINE
     Dosage: UNK, DECREASED DOSE
     Route: 048

REACTIONS (9)
  - Self-injurious ideation [Recovering/Resolving]
  - Irritability [Unknown]
  - Aggression [Recovering/Resolving]
  - Initial insomnia [Recovering/Resolving]
  - Condition aggravated [Unknown]
  - Agitation [Unknown]
  - Paradoxical drug reaction [Unknown]
  - Affect lability [Unknown]
  - Drug tolerance [Unknown]
